FAERS Safety Report 8502499-8 (Version None)
Quarter: 2012Q3

REPORT INFORMATION
  Report Type: 
  Country: None (occurrence: None)
  Receive Date: 20120711
  Receipt Date: 20120703
  Transmission Date: 20120928
  Serious: No
  Sender: FDA-Public Use
  Company Number: JP-SANOFI-AVENTIS-2010SA071400

PATIENT
  Age: 62 Year
  Sex: Male
  Weight: 60.6 kg

DRUGS (33)
  1. KETOPROFEN [Concomitant]
     Route: 062
     Dates: start: 20090305
  2. CANDESARTAN CILEXETIL [Concomitant]
     Route: 048
     Dates: start: 20090404
  3. MORPHINE HYDROCHLORIDE [Concomitant]
     Dates: start: 20090306, end: 20090306
  4. METOPROLOL TARTRATE [Concomitant]
     Route: 048
     Dates: start: 20090307, end: 20090307
  5. NITROGLYCERIN [Concomitant]
     Dates: start: 20090303, end: 20090306
  6. VERAPAMIL HCL [Concomitant]
     Dates: start: 20090310, end: 20090310
  7. NOREPINEPHRINE BITARTRATE [Concomitant]
     Dates: start: 20090306, end: 20090308
  8. LASIX [Suspect]
     Route: 048
     Dates: start: 20090519, end: 20090520
  9. ASPIRIN [Concomitant]
     Route: 048
     Dates: start: 20090302, end: 20090302
  10. ASPIRIN [Concomitant]
     Route: 048
     Dates: start: 20090303
  11. SOLITA T [Concomitant]
     Dates: start: 20090309, end: 20090313
  12. NITROGLYCERIN [Concomitant]
     Dosage: ROUTE: UNDER TONGUE
     Dates: start: 20090425
  13. POTASSIUM CHLORIDE [Concomitant]
     Dates: start: 20090309, end: 20090309
  14. ALL OTHER THERAPEUTIC PRODUCTS [Concomitant]
     Dates: start: 20090310, end: 20090310
  15. HEPARIN [Concomitant]
     Dosage: DOSE:5000 UNIT(S)
     Route: 042
     Dates: start: 20090302, end: 20090310
  16. CEFOTIAM HYDROCHLORIDE [Concomitant]
     Indication: INFECTION PROPHYLAXIS
     Route: 042
     Dates: start: 20090306, end: 20090311
  17. ZOLPIDEM [Concomitant]
     Route: 048
     Dates: start: 20090304
  18. MAGLAX [Concomitant]
     Route: 048
     Dates: start: 20090305, end: 20090403
  19. NITROGLYCERIN [Concomitant]
     Dates: start: 20090302, end: 20090302
  20. LASIX [Suspect]
     Indication: CARDIAC FAILURE CONGESTIVE
     Route: 048
     Dates: start: 20090317, end: 20090403
  21. RABEPRAZOLE SODIUM [Concomitant]
     Indication: GASTROINTESTINAL DISORDER
     Route: 048
     Dates: start: 20090305, end: 20091216
  22. LIPITOR [Concomitant]
     Route: 048
     Dates: start: 20090307
  23. CANDESARTAN CILEXETIL [Concomitant]
     Route: 048
     Dates: start: 20090310, end: 20090403
  24. ATROPINE [Concomitant]
     Dates: start: 20090306, end: 20090306
  25. DOBUTAMINE HCL [Concomitant]
     Dosage: DOSE: 50 (UNITS: UNKNOWN), DAILY DOSE: 100 (UNITS UNKNOWN)
     Dates: start: 20090307, end: 20090308
  26. DIGOXIN [Concomitant]
     Dates: start: 20090310, end: 20090310
  27. PLAVIX [Concomitant]
     Route: 048
     Dates: start: 20090302, end: 20090302
  28. PLAVIX [Concomitant]
     Route: 048
     Dates: start: 20090303
  29. LASIX [Suspect]
     Route: 065
     Dates: start: 20090308, end: 20090316
  30. BISOPROLOL FUMARATE [Concomitant]
     Indication: ANGINA UNSTABLE
     Route: 048
     Dates: start: 20090310, end: 20090512
  31. HEPARIN [Concomitant]
     Dosage: DOSE:3000 UNIT(S)
     Route: 042
     Dates: start: 20090302, end: 20090302
  32. MORPHINE HYDROCHLORIDE [Concomitant]
     Dates: start: 20090302, end: 20090303
  33. INOVAN [Concomitant]
     Dates: start: 20090306, end: 20090308

REACTIONS (2)
  - HYPOAESTHESIA [None]
  - DIZZINESS POSTURAL [None]
